FAERS Safety Report 7425147-7 (Version None)
Quarter: 2011Q2

REPORT INFORMATION
  Report Type: 
  Country: None (occurrence: None)
  Receive Date: 20110412
  Receipt Date: 20110324
  Transmission Date: 20111010
  Serious: Yes (Other)
  Sender: FDA-Public Use
  Company Number: 2011P1004684

PATIENT
  Age: 59 Year
  Sex: Female

DRUGS (2)
  1. MOMETASONE FUROATE [Suspect]
     Indication: MULTIPLE ALLERGIES
     Dosage: 1 APPLICAIION; X1; TOP
     Route: 061
     Dates: start: 20110219, end: 20110219
  2. PRILOSEC [Concomitant]

REACTIONS (9)
  - SKIN IRRITATION [None]
  - INCORRECT PRODUCT STORAGE [None]
  - PRODUCT FORMULATION ISSUE [None]
  - ERYTHEMA [None]
  - HYPERSENSITIVITY [None]
  - PAIN [None]
  - CHEMICAL INJURY [None]
  - LIQUID PRODUCT PHYSICAL ISSUE [None]
  - PRODUCT SUBSTITUTION ISSUE [None]
